FAERS Safety Report 5491741-6 (Version None)
Quarter: 2007Q4

REPORT INFORMATION
  Report Type: 
  Country: None (occurrence: None)
  Receive Date: 20071019
  Receipt Date: 20071019
  Transmission Date: 20080405
  Serious: No
  Sender: FDA-Public Use
  Company Number: None

PATIENT
  Sex: Female

DRUGS (1)
  1. AZTREONAM [Suspect]
     Indication: WOUND INFECTION

REACTIONS (2)
  - LIP SWELLING [None]
  - RASH [None]
